FAERS Safety Report 6619225-X (Version None)
Quarter: 2010Q1

REPORT INFORMATION
  Report Type: 
  Country: None (occurrence: None)
  Receive Date: 20100302
  Receipt Date: 20100217
  Transmission Date: 20100710
  Serious: Yes (Hospitalization)
  Sender: FDA-Public Use
  Company Number: 233380J09USA

PATIENT
  Age: 63 Year
  Sex: Female
  Weight: 109 kg

DRUGS (1)
  1. REBIF [Suspect]
     Indication: MULTIPLE SCLEROSIS
     Dosage: 22 MCG, 3 IN 1 WEEKS, SUBCUTANEOUS;   44 MCG, 3 IN 1 WEEKS, SUBCUTANEOUS
     Route: 058
     Dates: start: 20090904

REACTIONS (6)
  - BREAST CANCER RECURRENT [None]
  - DERMATITIS CONTACT [None]
  - INCISION SITE PAIN [None]
  - PAIN IN EXTREMITY [None]
  - SKIN EXFOLIATION [None]
  - THERMAL BURN [None]
